FAERS Safety Report 22080984 (Version 1)
Quarter: 2023Q1

REPORT INFORMATION
  Report Type: Spontaneous
  Country: CN (occurrence: CN)
  Receive Date: 20230309
  Receipt Date: 20230309
  Transmission Date: 20230417
  Serious: Yes (Other)
  Sender: FDA-Public Use
  Company Number: CN-PFIZER INC-PV202300042896

PATIENT
  Age: 59 Year
  Sex: Female
  Weight: 46 kg

DRUGS (4)
  1. SUNITINIB MALATE [Suspect]
     Active Substance: SUNITINIB MALATE
     Indication: Renal cell carcinoma
     Dosage: 50 MG, CYCLIC (QD, FOR 4 WEEKS, FOLLOWED BY 2 WEEKS OF DRUG WITHDRAWAL)
     Route: 048
     Dates: start: 20211020, end: 20211108
  2. SUNITINIB MALATE [Suspect]
     Active Substance: SUNITINIB MALATE
     Dosage: 50 MG, CYCLIC (QD, FOR 4 WEEKS, FOLLOWED BY 2 WEEKS OF DRUG WITHDRAWAL)
     Dates: start: 202112
  3. CAMRELIZUMAB [Suspect]
     Active Substance: CAMRELIZUMAB
     Indication: Renal cell carcinoma
     Dosage: 200 MG, SINGLE
     Route: 041
     Dates: start: 20211020, end: 20211020
  4. CAMRELIZUMAB [Suspect]
     Active Substance: CAMRELIZUMAB
     Dosage: 200 MG, SINGLE
     Dates: start: 202112

REACTIONS (2)
  - Myelosuppression [Recovered/Resolved]
  - Osteonecrosis of jaw [Unknown]

NARRATIVE: CASE EVENT DATE: 20211101
